FAERS Safety Report 9059510 (Version 3)
Quarter: 2013Q1

REPORT INFORMATION
  Report Type: Report from Study
  Country: US (occurrence: US)
  Receive Date: 20130211
  Receipt Date: 20130315
  Transmission Date: 20140127
  Serious: Yes (Hospitalization)
  Sender: FDA-Public Use
  Company Number: US-US-EMD SERONO, INC.-7192177

PATIENT
  Age: 38 None
  Sex: Female

DRUGS (6)
  1. REBIF [Suspect]
     Indication: MULTIPLE SCLEROSIS
     Route: 058
  2. REBIF [Suspect]
     Route: 058
     Dates: start: 20130108
  3. REBIF [Suspect]
     Route: 058
  4. CALCIUM WITH VITAMIN D [Concomitant]
     Indication: SUPPLEMENTATION THERAPY
  5. MIRALAX [Concomitant]
     Indication: CONSTIPATION
  6. BACLOFEN [Concomitant]
     Indication: TREMOR

REACTIONS (3)
  - Multiple sclerosis relapse [Recovering/Resolving]
  - Fall [Recovering/Resolving]
  - Contusion [Unknown]
